FAERS Safety Report 8205539-9 (Version None)
Quarter: 2012Q1

REPORT INFORMATION
  Report Type: 
  Country: None (occurrence: None)
  Receive Date: 20120313
  Receipt Date: 20120308
  Transmission Date: 20120608
  Serious: Yes (Hospitalization)
  Sender: FDA-Public Use
  Company Number: DE-SANOFI-AVENTIS-2012SA015812

PATIENT
  Age: 60 Year
  Sex: Male

DRUGS (3)
  1. FLUOROURACIL [Suspect]
     Dosage: TOTAL OF 10 CYCLES GIVEN
     Route: 065
  2. DOCETAXEL [Suspect]
     Dosage: TOTAL OF 10 CYCLES GIVEN
     Route: 065
  3. CISPLATIN [Suspect]
     Dosage: TOTAL OF 10 CYCLES GIVEN
     Route: 065

REACTIONS (5)
  - BACK PAIN [None]
  - NAUSEA [None]
  - ABDOMINAL PAIN [None]
  - C-REACTIVE PROTEIN INCREASED [None]
  - AORTIC ANEURYSM [None]
